FAERS Safety Report 11840502 (Version 1)
Quarter: 2015Q4

REPORT INFORMATION
  Report Type: Not Available
  Country: DE (occurrence: AU)
  Receive Date: 20151216
  Receipt Date: 20151216
  Transmission Date: 20160305
  Serious: Yes (Other)
  Sender: FDA-Public Use
  Company Number: DE-ANIPHARMA-2015-AU-000002

PATIENT
  Age: 68 Year
  Sex: Male

DRUGS (11)
  1. DIAFORMIN [Concomitant]
     Active Substance: METFORMIN HYDROCHLORIDE
     Dosage: UNK
     Route: 065
  2. NEXIUM [Concomitant]
     Active Substance: ESOMEPRAZOLE MAGNESIUM
     Dosage: UNK
     Route: 065
  3. ATORVASTATIN [Concomitant]
     Active Substance: ATORVASTATIN
     Dosage: UNK
     Route: 065
  4. MINIPRESS [Concomitant]
     Active Substance: PRAZOSIN HYDROCHLORIDE
     Dosage: UNK
     Route: 065
  5. OSTEVIT D [Concomitant]
     Dosage: UNK
     Route: 065
  6. IRON [Concomitant]
     Active Substance: IRON
     Dosage: UNK
     Route: 065
  7. GLUCOSAMINE [Concomitant]
     Active Substance: GLUCOSAMINE
     Dosage: UNK
     Route: 065
  8. FLUVOXAMINE (NON-SPECIFIC) [Suspect]
     Active Substance: FLUVOXAMINE
     Dosage: UNK
     Route: 065
  9. SINEMET [Concomitant]
     Active Substance: CARBIDOPA\LEVODOPA
     Dosage: UNK
     Route: 065
  10. PANADOL [Concomitant]
     Active Substance: ACETAMINOPHEN
     Dosage: UNK
     Route: 065
  11. HUMIRA [Suspect]
     Active Substance: ADALIMUMAB
     Dosage: UNK
     Route: 065

REACTIONS (7)
  - Post-traumatic stress disorder [None]
  - Fall [Unknown]
  - Suicidal ideation [Unknown]
  - Insomnia [Unknown]
  - Panic attack [None]
  - Drug ineffective [Unknown]
  - Rib fracture [Unknown]

NARRATIVE: CASE EVENT DATE: 20140519
